FAERS Safety Report 4316537-X (Version None)
Quarter: 2004Q1

REPORT INFORMATION
  Report Type: 
  Country: None (occurrence: None)
  Receive Date: 20040310
  Receipt Date: 20040126
  Transmission Date: 20041129
  Serious: No
  Sender: FDA-Public Use
  Company Number: FROV000160

PATIENT
  Age: 41 Year
  Sex: Female

DRUGS (4)
  1. FROVA [Suspect]
     Indication: MIGRAINE
     Dosage: ORAL
     Route: 048
     Dates: start: 20030715
  2. AXERT [Suspect]
  3. LAMICTAL [Concomitant]
  4. KEPPRA [Concomitant]

REACTIONS (3)
  - DIZZINESS [None]
  - ELEVATED MOOD [None]
  - THIRST [None]
